FAERS Safety Report 4893648-1 (Version None)
Quarter: 2005Q4

REPORT INFORMATION
  Report Type: 
  Country: None (occurrence: None)
  Receive Date: 20051223
  Receipt Date: 20050906
  Transmission Date: 20060501
  Serious: No
  Sender: FDA-Public Use
  Company Number: 05P-163-0310364-00

PATIENT
  Age: 56 Year
  Sex: Female
  Weight: 83.9154 kg

DRUGS (14)
  1. HUMIRA [Suspect]
     Indication: RHEUMATOID ARTHRITIS
     Dosage: 40 MG, SUBCUTANEOUS
     Route: 058
     Dates: start: 20050629
  2. TRAMADOL HCL [Concomitant]
  3. VICODIN [Concomitant]
  4. MELOXICAM [Concomitant]
  5. CLOTRIMAZOLE [Concomitant]
  6. VENLAFAXINE HCL [Concomitant]
  7. METHOTREXATE SODIUM [Concomitant]
  8. PANTOPRAZOLE [Concomitant]
  9. LUNESTA [Concomitant]
  10. FOLTX [Concomitant]
  11. SINGULAIR [Concomitant]
  12. ZYRTEC-D 12 HOUR [Concomitant]
  13. LEVOTHYROXINE SODIUM [Concomitant]
  14. PREDNISONE [Concomitant]

REACTIONS (1)
  - INJECTION SITE PAIN [None]
